FAERS Safety Report 12505611 (Version 1)
Quarter: 2016Q2

REPORT INFORMATION
  Report Type: Report from Study
  Country: FR (occurrence: FR)
  Receive Date: 20160628
  Receipt Date: 20160628
  Transmission Date: 20160815
  Serious: Yes (Other)
  Sender: FDA-Public Use
  Company Number: FR-TEVA-671872ISR

PATIENT
  Age: 16 Year
  Sex: Male

DRUGS (1)
  1. VINCRISTINE [Suspect]
     Active Substance: VINCRISTINE
     Indication: HODGKIN^S DISEASE
     Dosage: 1.5 MG/M2 IN 4 WEEKLY INFUSIONS DURING INDUCTION; CUMULATIVE DOSE OF VINCRISTINE 14.10 MG/M2
     Route: 050

REACTIONS (1)
  - Axonal neuropathy [Recovered/Resolved]
